FAERS Safety Report 4598265-9 (Version None)
Quarter: 2005Q1

REPORT INFORMATION
  Report Type: 
  Country: None (occurrence: None)
  Receive Date: 20050304
  Receipt Date: 20050222
  Transmission Date: 20050727
  Serious: Yes (Other)
  Sender: FDA-Public Use
  Company Number: FR-GLAXOSMITHKLINE-B0371940A

PATIENT
  Age: 69 Year
  Sex: Male

DRUGS (4)
  1. AVANDIA [Suspect]
     Dosage: 4MG PER DAY
     Route: 048
  2. METFORMIN [Concomitant]
     Dosage: 1000MG THREE TIMES PER DAY
     Route: 048
  3. ZESTORETIC [Concomitant]
     Route: 048
  4. TELFAST [Concomitant]
     Route: 065

REACTIONS (3)
  - LARYNGEAL OEDEMA [None]
  - RESPIRATORY DISORDER [None]
  - TONGUE OEDEMA [None]
